FAERS Safety Report 5898270-6 (Version None)
Quarter: 2008Q3

REPORT INFORMATION
  Report Type: 
  Country: None (occurrence: None)
  Receive Date: 20080925
  Receipt Date: 20070813
  Transmission Date: 20090109
  Serious: No
  Sender: FDA-Public Use
  Company Number: A0669777A

PATIENT
  Age: 53 Year
  Sex: Male

DRUGS (4)
  1. WELLBUTRIN XL [Suspect]
     Indication: BIPOLAR DISORDER
     Dosage: 300MG PER DAY
     Route: 048
     Dates: start: 20040801
  2. LAMICTAL [Concomitant]
  3. CLONIDINE [Concomitant]
  4. AVAPRO [Concomitant]

REACTIONS (1)
  - OVERDOSE [None]
